FAERS Safety Report 25835747 (Version 1)
Quarter: 2025Q3

REPORT INFORMATION
  Report Type: Spontaneous
  Country: CN (occurrence: CN)
  Receive Date: 20250923
  Receipt Date: 20250923
  Transmission Date: 20251021
  Serious: Yes (Hospitalization)
  Sender: MYLAN
  Company Number: CN-MYLANLABS-2025M1079709

PATIENT
  Age: 37 Year
  Sex: Female

DRUGS (11)
  1. METFORMIN [Suspect]
     Active Substance: METFORMIN HYDROCHLORIDE
     Indication: In vitro fertilisation
     Dates: start: 20200319, end: 20210623
  2. UROFOLLITROPIN [Suspect]
     Active Substance: UROFOLLITROPIN
     Indication: In vitro fertilisation
     Dates: start: 20200319, end: 20210623
  3. ACETIC ACID [Suspect]
     Active Substance: ACETIC ACID
     Indication: In vitro fertilisation
     Dates: start: 20200319, end: 20210623
  4. PREDNISONE ACETATE [Suspect]
     Active Substance: PREDNISONE ACETATE
     Indication: In vitro fertilisation
     Dates: start: 20200319, end: 20210623
  5. ASPIRIN [Suspect]
     Active Substance: ASPIRIN
     Indication: In vitro fertilisation
     Dates: start: 20200319, end: 20210623
  6. CEFACLOR [Suspect]
     Active Substance: CEFACLOR
     Indication: In vitro fertilisation
     Dates: start: 20200319, end: 20210623
  7. ESTRADIOL VALERATE [Suspect]
     Active Substance: ESTRADIOL VALERATE
     Indication: In vitro fertilisation
     Dates: start: 20200319, end: 20210623
  8. PROGESTERONE [Suspect]
     Active Substance: PROGESTERONE
     Indication: In vitro fertilisation
     Dates: start: 20200319, end: 20210623
  9. DUPHASTON [Suspect]
     Active Substance: DYDROGESTERONE
     Indication: In vitro fertilisation
     Dates: start: 20200319, end: 20210623
  10. CHORIONIC GONADOTROPHIN [Suspect]
     Active Substance: CHORIOGONADOTROPIN ALFA
     Indication: In vitro fertilisation
     Dates: start: 20200319, end: 20210623
  11. EUCOMMIA ULMOIDES BARK [Suspect]
     Active Substance: EUCOMMIA ULMOIDES BARK
     Indication: In vitro fertilisation
     Dates: start: 20200319, end: 20210623

REACTIONS (2)
  - Pleomorphic adenoma [Recovered/Resolved]
  - Off label use [Unknown]
